FAERS Safety Report 20854126 (Version 7)
Quarter: 2023Q1

REPORT INFORMATION
  Report Type: Spontaneous
  Country: IN (occurrence: IN)
  Receive Date: 20220520
  Receipt Date: 20230308
  Transmission Date: 20230418
  Serious: Yes (Other)
  Sender: FDA-Public Use
  Company Number: IN-PFIZER INC-202101566791

PATIENT
  Age: 68 Year
  Sex: Female

DRUGS (8)
  1. PALBOCICLIB [Suspect]
     Active Substance: PALBOCICLIB
     Indication: Breast cancer metastatic
     Dosage: 125 MG, 1X/DAY
     Route: 048
     Dates: start: 20210531, end: 20211103
  2. PALBOCICLIB [Suspect]
     Active Substance: PALBOCICLIB
     Dosage: 125 MG, CYCLIC (125MG OD X 3WKS THEN 1 WK OFF X 3 MONTHS)
     Route: 048
  3. LETROZOLE [Concomitant]
     Active Substance: LETROZOLE
     Dosage: 2.5 MG, 1X/DAY
  4. SHELCAL CT [Concomitant]
     Dosage: 500 MG, 1X/DAY
  5. ZOLEDRONIC ACID [Concomitant]
     Active Substance: ZOLEDRONIC ACID
     Dosage: 4 MG (4MG IV IN 100ML NS ONCE 20 MINS)
     Route: 042
  6. ZOLEDRONIC ACID [Concomitant]
     Active Substance: ZOLEDRONIC ACID
     Dosage: 4 MG (4MG I/V IN 100ML NS ONCE 30 MINS)
  7. VITCOFOL [CYANOCOBALAMIN;FERROUS FUMARATE;FOLIC ACID;PYRIDOXINE HYDROC [Concomitant]
     Dosage: UNK, 2CC I/M EVERY ALTERNATE DAY X 8 DOSES
  8. CALCIROL [COLECALCIFEROL] [Concomitant]
     Dosage: 60000U ONCE WEEKLY X 6 DOSES

REACTIONS (22)
  - Eosinophil count decreased [Recovered/Resolved]
  - Leukopenia [Unknown]
  - Red blood cell sedimentation rate increased [Unknown]
  - Hot flush [Unknown]
  - Basophil percentage increased [Recovered/Resolved]
  - Haematocrit decreased [Not Recovered/Not Resolved]
  - White blood cell count decreased [Not Recovered/Not Resolved]
  - Red blood cell count decreased [Not Recovered/Not Resolved]
  - Mean cell volume increased [Not Recovered/Not Resolved]
  - Mean cell haemoglobin increased [Recovered/Resolved]
  - Platelet count decreased [Unknown]
  - Red cell distribution width increased [Not Recovered/Not Resolved]
  - Neutrophil count decreased [Recovered/Resolved]
  - Lymphocyte count decreased [Recovered/Resolved]
  - Haemoglobin decreased [Not Recovered/Not Resolved]
  - Monocyte count increased [Recovered/Resolved]
  - Pruritus [Unknown]
  - Rash [Unknown]
  - Fatigue [Unknown]
  - Anisocytosis [Unknown]
  - Arthralgia [Unknown]
  - Monocyte count decreased [Unknown]

NARRATIVE: CASE EVENT DATE: 20230227
